FAERS Safety Report 21599709 (Version 1)
Quarter: 2022Q4

REPORT INFORMATION
  Report Type: Spontaneous
  Country: US (occurrence: None)
  Receive Date: 20221115
  Receipt Date: 20221115
  Transmission Date: 20230113
  Serious: No
  Sender: FDA-Public Use
  Company Number: None

PATIENT
  Sex: Male

DRUGS (1)
  1. LENALIDOMIDE [Suspect]
     Active Substance: LENALIDOMIDE
     Indication: Diffuse large B-cell lymphoma
     Dosage: 10 MG EVERY OTHER DAY ORAL?
     Route: 048
     Dates: start: 20220805

REACTIONS (6)
  - Cough [None]
  - Neuropathy peripheral [None]
  - Muscle contracture [None]
  - Fatigue [None]
  - Asthenia [None]
  - Diarrhoea [None]
